FAERS Safety Report 4389488-2 (Version None)
Quarter: 2004Q2

REPORT INFORMATION
  Report Type: 
  Country: None (occurrence: None)
  Receive Date: 20040628
  Receipt Date: 20040614
  Transmission Date: 20050107
  Serious: Yes (Hospitalization)
  Sender: FDA-Public Use
  Company Number: FR-JNJFOC-20040404523

PATIENT
  Age: 80 Year
  Sex: Female
  Weight: 45 kg

DRUGS (5)
  1. RISPERDAL [Suspect]
     Indication: CONFUSIONAL STATE
     Dosage: 0.5, 1, 3 MG, IN 1 DAY, ORAL
     Route: 048
     Dates: start: 20040219, end: 20040225
  2. RISPERDAL [Suspect]
     Indication: CONFUSIONAL STATE
     Dosage: 0.5, 1, 3 MG, IN 1 DAY, ORAL
     Route: 048
     Dates: start: 20040226, end: 20040304
  3. RISPERDAL [Suspect]
     Indication: CONFUSIONAL STATE
     Dosage: 0.5, 1, 3 MG, IN 1 DAY, ORAL
     Route: 048
     Dates: start: 20040305, end: 20040315
  4. REMINYL [Suspect]
     Indication: DEMENTIA ALZHEIMER'S TYPE
     Dosage: 8 - 16 MG, IN 1 DAY, ORAL
     Route: 048
     Dates: start: 20040219, end: 20040225
  5. REMINYL [Suspect]
     Indication: DEMENTIA ALZHEIMER'S TYPE
     Dosage: 8 - 16 MG, IN 1 DAY, ORAL
     Route: 048
     Dates: start: 20040315, end: 20040407

REACTIONS (6)
  - IMMOBILE [None]
  - LETHARGY [None]
  - OEDEMA PERIPHERAL [None]
  - PHLEBITIS [None]
  - SALIVARY HYPERSECRETION [None]
  - THROMBOSIS [None]
